FAERS Safety Report 17817002 (Version 1)
Quarter: 2020Q2

REPORT INFORMATION
  Report Type: Spontaneous
  Country: US (occurrence: US)
  Receive Date: 20200522
  Receipt Date: 20200522
  Transmission Date: 20200714
  Serious: Yes (Other)
  Sender: FDA-Public Use
  Company Number: None

PATIENT
  Age: 69 Year
  Sex: Male
  Weight: 73.4 kg

DRUGS (9)
  1. REMDESIVIR UNDER EMERGENCY USE AUTHORIZATION (EUA). [Suspect]
     Active Substance: REMDESIVIR
     Indication: CORONAVIRUS INFECTION
     Route: 042
     Dates: start: 20200519, end: 20200521
  2. FENTANYL INFUSION [Concomitant]
     Active Substance: FENTANYL
     Dates: start: 20200519
  3. LOVENOX [Concomitant]
     Active Substance: ENOXAPARIN SODIUM
     Dates: start: 20200518, end: 20200521
  4. INSULIN REGULAR (HUMULIN R) SLIDING SCALE [Concomitant]
     Dates: start: 20200519
  5. NOREPINEPHRINE (LEVOPHED) [Concomitant]
     Dates: start: 20200520
  6. PROPOFOL INFUSION [Concomitant]
     Active Substance: PROPOFOL
     Dates: start: 20200519
  7. FUROSEMIDE. [Concomitant]
     Active Substance: FUROSEMIDE
     Dates: start: 20200519, end: 20200519
  8. VASOPRESSIN. [Concomitant]
     Active Substance: VASOPRESSIN
     Dates: start: 20200521
  9. INSULIN GLARGINE [Concomitant]
     Active Substance: INSULIN GLARGINE
     Dates: start: 20200517, end: 20200521

REACTIONS (6)
  - Clinical trial participant [None]
  - Shock [None]
  - Product use in unapproved indication [None]
  - Respiratory failure [None]
  - Renal replacement therapy [None]
  - Acute kidney injury [None]

NARRATIVE: CASE EVENT DATE: 20200521
